FAERS Safety Report 8001226-0 (Version None)
Quarter: 2011Q4

REPORT INFORMATION
  Report Type: 
  Country: None (occurrence: None)
  Receive Date: 20111220
  Receipt Date: 20111209
  Transmission Date: 20120403
  Serious: Yes (Hospitalization, Disabling)
  Sender: FDA-Public Use
  Company Number: 2011SP057698

PATIENT
  Age: 44 Year
  Sex: Female

DRUGS (2)
  1. PEG-INTRON [Suspect]
     Indication: HEPATITIS C
  2. REBETOL [Suspect]
     Indication: HEPATITIS C

REACTIONS (4)
  - GAIT DISTURBANCE [None]
  - IMPAIRED WORK ABILITY [None]
  - AMNESIA [None]
  - VAGINAL HAEMORRHAGE [None]
